FAERS Safety Report 4684983-0 (Version None)
Quarter: 2005Q2

REPORT INFORMATION
  Report Type: 
  Country: None (occurrence: None)
  Receive Date: 20050531
  Receipt Date: 20050302
  Transmission Date: 20051028
  Serious: No
  Sender: FDA-Public Use
  Company Number: WAES 0503USA00424

PATIENT
  Sex: Male

DRUGS (2)
  1. ZETIA [Suspect]
     Indication: BLOOD CHOLESTEROL INCREASED
     Dosage: UNK/UNK/PO
     Route: 048
     Dates: start: 20040801, end: 20050109
  2. ALCOHOL [Suspect]

REACTIONS (7)
  - ADVERSE EVENT [None]
  - ALCOHOLISM [None]
  - AMNESIA [None]
  - ANXIETY [None]
  - DELUSIONAL DISORDER, PERSECUTORY TYPE [None]
  - SUICIDAL IDEATION [None]
  - URINARY TRACT DISORDER [None]
